FAERS Safety Report 9373502 (Version 1)
Quarter: 2013Q2

REPORT INFORMATION
  Report Type: Spontaneous
  Country: US (occurrence: US)
  Receive Date: 20130627
  Receipt Date: 20130627
  Transmission Date: 20140414
  Serious: Yes (Other)
  Sender: FDA-Public Use
  Company Number: US-NICOBRDEVP-2013-11161

PATIENT
  Age: 42 Year
  Sex: Female

DRUGS (2)
  1. TAMOXIFEN CITRATE (UNKNOWN) [Suspect]
     Indication: BREAST CANCER
     Dosage: UNKNOWN
     Route: 065
  2. TAMOXIFEN CITRATE (UNKNOWN) [Suspect]
     Indication: BREAST CANCER IN SITU

REACTIONS (1)
  - Organising pneumonia [Recovering/Resolving]
